FAERS Safety Report 5717139-0 (Version None)
Quarter: 2008Q2

REPORT INFORMATION
  Report Type: 
  Country: None (occurrence: None)
  Receive Date: 20080423
  Receipt Date: 20080408
  Transmission Date: 20081010
  Serious: Yes (Other)
  Sender: FDA-Public Use
  Company Number: TRP_05655_2008

PATIENT
  Sex: Female

DRUGS (5)
  1. RIBAVIRIN [Suspect]
     Indication: HEPATITIS C VIRUS
     Dosage: 800 MG QD ORAL
     Route: 048
     Dates: start: 20080116
  2. PEGASYS [Suspect]
     Indication: HEPATITIS C VIRUS
     Dosage: 135 UG 1X WEEK SUBCUTANEOUS, 180 UG 1X WEEK SUBCUTANEOUS
     Route: 058
     Dates: start: 20080101
  3. PEGASYS [Suspect]
     Indication: HEPATITIS C VIRUS
     Dosage: 135 UG 1X WEEK SUBCUTANEOUS, 180 UG 1X WEEK SUBCUTANEOUS
     Route: 058
     Dates: start: 20080116
  4. NEUPOGEN [Concomitant]
  5. PROCRIT [Concomitant]

REACTIONS (14)
  - ANXIETY [None]
  - ASTHENIA [None]
  - CRYING [None]
  - DIZZINESS [None]
  - DRY SKIN [None]
  - DYSPNOEA [None]
  - FATIGUE [None]
  - HAEMOGLOBIN DECREASED [None]
  - NEUTROPHIL COUNT DECREASED [None]
  - PLATELET COUNT DECREASED [None]
  - RASH [None]
  - RASH PAPULAR [None]
  - SKIN ULCER [None]
  - WHITE BLOOD CELL COUNT DECREASED [None]
